FAERS Safety Report 6223204-4 (Version None)
Quarter: 2009Q2

REPORT INFORMATION
  Report Type: 
  Country: None (occurrence: None)
  Receive Date: 20090611
  Receipt Date: 20090609
  Transmission Date: 20091009
  Serious: Yes (Hospitalization)
  Sender: FDA-Public Use
  Company Number: KR-BRISTOL-MYERS SQUIBB COMPANY-14655179

PATIENT
  Age: 41 Year
  Sex: Male

DRUGS (6)
  1. CETUXIMAB [Suspect]
     Indication: HEAD AND NECK CANCER
     Dosage: RECENT INFUSION :28APR09
     Route: 042
     Dates: start: 20090119
  2. CISPLATIN [Suspect]
     Indication: HEAD AND NECK CANCER
     Dosage: RECENT INF ON 28APR2009
     Route: 042
     Dates: start: 20090119
  3. DOCETAXEL [Suspect]
     Indication: HEAD AND NECK CANCER
     Dosage: RECENT INF ON 28APR2009
     Route: 042
     Dates: start: 20090119
  4. FENTANYL [Concomitant]
     Dosage: FENTANYL MATRIS
     Dates: start: 20090430
  5. AMLODIPINE BESYLATE [Concomitant]
     Dates: start: 20090120
  6. LOSARTAN POTASSIUM [Concomitant]
     Dates: start: 20090120

REACTIONS (2)
  - ANOREXIA [None]
  - MUCOSAL INFLAMMATION [None]
